FAERS Safety Report 23843212 (Version 2)
Quarter: 2024Q2

REPORT INFORMATION
  Report Type: Spontaneous
  Country: GB (occurrence: GB)
  Receive Date: 20240510
  Receipt Date: 20240531
  Transmission Date: 20240716
  Serious: Yes (Other)
  Sender: FDA-Public Use
  Company Number: None

PATIENT
  Age: 61 Year
  Sex: Male
  Weight: 136 kg

DRUGS (13)
  1. LOSARTAN [Suspect]
     Active Substance: LOSARTAN
     Indication: Product used for unknown indication
     Route: 065
     Dates: start: 20240202
  2. ATORVASTATIN [Concomitant]
     Active Substance: ATORVASTATIN
     Route: 048
     Dates: start: 20240426
  3. INSULIN HUMAN [Concomitant]
     Active Substance: INSULIN HUMAN
     Dosage: USE AS DIRECTED
     Dates: start: 20230110
  4. MIRABEGRON [Concomitant]
     Active Substance: MIRABEGRON
     Route: 048
     Dates: start: 20230110
  5. TAMSULOSIN HYDROCHLORIDE [Concomitant]
     Active Substance: TAMSULOSIN HYDROCHLORIDE
     Route: 048
     Dates: start: 20230110
  6. PREGABALIN [Concomitant]
     Active Substance: PREGABALIN
     Route: 048
     Dates: start: 20230110
  7. METFORMIN [Concomitant]
     Active Substance: METFORMIN HYDROCHLORIDE
     Route: 048
     Dates: start: 20230110
  8. SILDENAFIL [Concomitant]
     Active Substance: SILDENAFIL
     Indication: Male sexual dysfunction
     Dosage: TIME INTERVAL: AS NECESSARY: ONE HOUR BEFORE SEXUAL
     Route: 048
     Dates: start: 20230110
  9. PRAVASTATIN [Concomitant]
     Active Substance: PRAVASTATIN
     Dosage: AT NIGHT
     Route: 048
     Dates: start: 20230110, end: 20240426
  10. HYDROMOL [Concomitant]
     Dosage: APPLY TO SKIN FREQUENTLY AND LIBERALLY, AS OFTE...
     Route: 061
     Dates: start: 20230110
  11. NON MEDICINAL PRODUCT [Concomitant]
     Dosage: USE AS DIRECTED. ONCE FULL PLEASE RETURN TO SUR...
     Dates: start: 20230710
  12. NON MEDICINAL PRODUCT [Concomitant]
     Dosage: USE AS DIRECTED
     Dates: start: 20230110
  13. NON MEDICINAL PRODUCT [Concomitant]
     Dosage: USE AS DIRECTED, DURATION: 7 DAYS
     Dates: start: 20240208, end: 20240215

REACTIONS (4)
  - Bronchospasm [Recovered/Resolved]
  - Cough [Unknown]
  - Peripheral swelling [Recovered/Resolved]
  - Pruritus [Recovered/Resolved]

NARRATIVE: CASE EVENT DATE: 20240202
